FAERS Safety Report 20598508 (Version 1)
Quarter: 2022Q1

REPORT INFORMATION
  Report Type: Spontaneous
  Country: RU (occurrence: RU)
  Receive Date: 20220315
  Receipt Date: 20220315
  Transmission Date: 20220423
  Serious: Yes (Hospitalization, Disabling, Other)
  Sender: FDA-Public Use
  Company Number: RU-ABBVIE-22K-251-4315896-00

PATIENT
  Age: 5 Year
  Sex: Female

DRUGS (3)
  1. VALPROIC ACID [Suspect]
     Active Substance: VALPROIC ACID
     Indication: Epilepsy
     Route: 048
  2. LEVETIRACETAM [Suspect]
     Active Substance: LEVETIRACETAM
     Indication: Product used for unknown indication
     Dosage: 500 MG IN THE MORNING AND 750 MG IN THE EVENING, EVERY OTHER DAY
     Route: 048
  3. ETHOSUXIMIDE [Suspect]
     Active Substance: ETHOSUXIMIDE
     Indication: Product used for unknown indication
     Dosage: 250 MG IN THE MORNING AND 500 MG IN THE EVENING
     Route: 048

REACTIONS (2)
  - Benign rolandic epilepsy [Not Recovered/Not Resolved]
  - Epilepsy [Not Recovered/Not Resolved]

NARRATIVE: CASE EVENT DATE: 20181201
